FAERS Safety Report 6011418-8 (Version None)
Quarter: 2008Q4

REPORT INFORMATION
  Report Type: 
  Country: None (occurrence: None)
  Receive Date: 20081218
  Receipt Date: 20000222
  Transmission Date: 20090506
  Serious: Yes (Death, Hospitalization, Other)
  Sender: FDA-Public Use
  Company Number: JP-ROCHE-210973

PATIENT
  Sex: Male

DRUGS (7)
  1. PANALDINE [Suspect]
     Indication: MYOCARDIAL INFARCTION
     Route: 048
     Dates: start: 19990209, end: 19990409
  2. AZOSEMIDE [Concomitant]
     Route: 048
     Dates: start: 19990209, end: 19990422
  3. DIGOXIN [Concomitant]
     Route: 048
     Dates: start: 19990209, end: 19990409
  4. ISOSORBIDE DINITRATE [Concomitant]
     Route: 048
     Dates: start: 19990209, end: 19990409
  5. NITROGLYCERIN [Concomitant]
     Dosage: DOSE = 1. NO UNITS PROVIDED.
     Dates: start: 19990209, end: 19990510
  6. FUROSEMIDE [Concomitant]
     Route: 048
     Dates: start: 19990209, end: 19990421
  7. ALLOPURINOL [Concomitant]
     Route: 048
     Dates: start: 19990308, end: 19990409

REACTIONS (9)
  - ANAEMIA [None]
  - DEATH [None]
  - HAEMATEMESIS [None]
  - HEPATIC FUNCTION ABNORMAL [None]
  - PLEURAL EFFUSION [None]
  - RENAL FAILURE [None]
  - RESPIRATORY ARREST [None]
  - SOMNOLENCE [None]
  - VENTRICULAR EXTRASYSTOLES [None]
